FAERS Safety Report 4778717-9 (Version None)
Quarter: 2005Q3

REPORT INFORMATION
  Report Type: 
  Country: None (occurrence: None)
  Receive Date: 20050926
  Receipt Date: 20050914
  Transmission Date: 20060218
  Serious: Yes (Other)
  Sender: FDA-Public Use
  Company Number: US-ROCHE-418013

PATIENT
  Age: 32 Year
  Sex: Female

DRUGS (3)
  1. ACCUTANE [Suspect]
     Route: 065
     Dates: start: 20040101, end: 20040430
  2. NUVARING [Concomitant]
     Indication: CONTRACEPTION
     Dosage: TAKEN FOR OVER A YEAR
     Route: 065
  3. BIRTH CONTROL PILLS [Concomitant]
     Indication: CONTRACEPTION
     Route: 065
     Dates: start: 20040115, end: 20040415

REACTIONS (2)
  - ECTOPIC PREGNANCY [None]
  - UNINTENDED PREGNANCY [None]
